FAERS Safety Report 5276118-0 (Version None)
Quarter: 2007Q1

REPORT INFORMATION
  Report Type: 
  Country: None (occurrence: None)
  Receive Date: 20070326
  Receipt Date: 20070313
  Transmission Date: 20070707
  Serious: Yes (Hospitalization, Other)
  Sender: FDA-Public Use
  Company Number: US-PURDUE-DEU_2007_0003124

PATIENT
  Age: 47 Year
  Sex: Male

DRUGS (1)
  1. MORPHINE SULFATE [Suspect]
     Indication: BACK PAIN
     Route: 037

REACTIONS (4)
  - INJECTION SITE MASS [None]
  - INJECTION SITE NODULE [None]
  - INTRASPINAL ABSCESS [None]
  - STREPTOCOCCAL INFECTION [None]
